FAERS Safety Report 5827129-5 (Version None)
Quarter: 2008Q3

REPORT INFORMATION
  Report Type: 
  Country: None (occurrence: None)
  Receive Date: 20080729
  Receipt Date: 20080729
  Transmission Date: 20090109
  Serious: Yes (Other)
  Sender: FDA-Public Use
  Company Number: None

PATIENT
  Age: 70 Year
  Sex: Male
  Weight: 91.17 kg

DRUGS (1)
  1. VANCOMYCIN [Suspect]
     Indication: POST PROCEDURAL INFECTION

REACTIONS (1)
  - NEUTROPENIA [None]
